FAERS Safety Report 7527385-1 (Version None)
Quarter: 2011Q2

REPORT INFORMATION
  Report Type: 
  Country: None (occurrence: None)
  Receive Date: 20110607
  Receipt Date: 20110525
  Transmission Date: 20111010
  Serious: Yes (Other)
  Sender: FDA-Public Use
  Company Number: BE-JNJFOC-20110600601

PATIENT

DRUGS (3)
  1. DOXORUBICIN HYDROCHLORIDE [Suspect]
     Indication: SALIVARY GLAND CANCER
     Route: 042
  2. CYCLOPHOSPHAMIDE [Suspect]
     Indication: SALIVARY GLAND CANCER
     Route: 065
  3. CISPLATIN [Suspect]
     Indication: SALIVARY GLAND CANCER
     Route: 065

REACTIONS (3)
  - OFF LABEL USE [None]
  - INFECTION [None]
  - TUMOUR NECROSIS [None]
